FAERS Safety Report 21772502 (Version 1)
Quarter: 2022Q4

REPORT INFORMATION
  Report Type: Spontaneous
  Country: SE (occurrence: SE)
  Receive Date: 20221223
  Receipt Date: 20221223
  Transmission Date: 20230113
  Serious: Yes (Other)
  Sender: FDA-Public Use
  Company Number: SE-EMA-DD-20221205-7182781-114527

PATIENT
  Age: 86 Year
  Sex: Male

DRUGS (2)
  1. ALLOPURINOL [Suspect]
     Active Substance: ALLOPURINOL
     Indication: Gout
     Dosage: 200 MILLIGRAM DAILY; 100 MILLIGRAM, BID
     Route: 048
  2. KEPPRA [Concomitant]
     Active Substance: LEVETIRACETAM
     Indication: Seizure
     Dosage: 1000 MILLIGRAM DAILY; 500 MILLIGRAM, BID

REACTIONS (4)
  - Consciousness fluctuating [Unknown]
  - Tongue haemorrhage [Unknown]
  - Seizure [Unknown]
  - Tongue biting [Unknown]
